FAERS Safety Report 4434814-9 (Version None)
Quarter: 2004Q3

REPORT INFORMATION
  Report Type: 
  Country: None (occurrence: None)
  Receive Date: 20040726
  Receipt Date: 20040513
  Transmission Date: 20050211
  Serious: No
  Sender: FDA-Public Use
  Company Number: USA040567466

PATIENT
  Age: 77 Year
  Sex: Female
  Weight: 55 kg

DRUGS (7)
  1. FORTEO [Suspect]
     Indication: OSTEOPOROSIS
     Dosage: 20 UG DAY
     Dates: start: 20040401
  2. ACETAMINOPHEN AND HYDROCODONE BITARTRATE [Concomitant]
  3. GLUCOPHAGE [Concomitant]
  4. FOLIC AICD [Concomitant]
  5. ZESTRIL [Concomitant]
  6. ZANTAC [Concomitant]
  7. SYNTHROID [Concomitant]

REACTIONS (4)
  - ABDOMINAL PAIN UPPER [None]
  - DIARRHOEA [None]
  - PAIN IN EXTREMITY [None]
  - VIRAL INFECTION [None]
